FAERS Safety Report 10283928 (Version 1)
Quarter: 2014Q3

REPORT INFORMATION
  Report Type: Spontaneous
  Country: DE (occurrence: None)
  Receive Date: 20140703
  Receipt Date: 20140703
  Transmission Date: 20150326
  Serious: Yes (Hospitalization)
  Sender: FDA-Public Use
  Company Number: 2014175502

PATIENT
  Age: 36 Year
  Sex: Female

DRUGS (6)
  1. ESTRIFAM [Suspect]
     Active Substance: ESTRADIOL
  2. GONAL-F [Suspect]
     Active Substance: FOLLITROPIN
  3. ORGALUTRAN [Suspect]
     Active Substance: GANIRELIX ACETATE
  4. FRAGMIN [Suspect]
     Active Substance: DALTEPARIN SODIUM
  5. DECAPEPTYL [Suspect]
     Active Substance: TRIPTORELIN ACETATE
  6. PROGESTAN [Suspect]
     Active Substance: PROGESTERONE

REACTIONS (1)
  - Ovarian hyperstimulation syndrome [None]

NARRATIVE: CASE EVENT DATE: 20140505
